FAERS Safety Report 23515305 (Version 3)
Quarter: 2024Q2

REPORT INFORMATION
  Report Type: Spontaneous
  Country: US (occurrence: US)
  Receive Date: 20240213
  Receipt Date: 20240409
  Transmission Date: 20240716
  Serious: Yes (Hospitalization)
  Sender: FDA-Public Use
  Company Number: US-BRISTOL-MYERS SQUIBB COMPANY-2024-022248

PATIENT
  Age: 71 Year
  Sex: Male
  Weight: 107.95 kg

DRUGS (1)
  1. REVLIMID [Suspect]
     Active Substance: LENALIDOMIDE
     Indication: Plasma cell myeloma
     Dosage: 3W, 1W OFF (DAILY FOR 21 DAYS)
     Route: 048

REACTIONS (3)
  - COVID-19 [Recovering/Resolving]
  - Oropharyngeal pain [Unknown]
  - Upper respiratory tract infection [Recovering/Resolving]
